FAERS Safety Report 8465293-2 (Version None)
Quarter: 2012Q2

REPORT INFORMATION
  Report Type: 
  Country: None (occurrence: None)
  Receive Date: 20120626
  Receipt Date: 20120622
  Transmission Date: 20120825
  Serious: Yes (Other)
  Sender: FDA-Public Use
  Company Number: PHHY2012DE054273

PATIENT
  Age: 61 Year
  Sex: Female
  Weight: 38 kg

DRUGS (2)
  1. EXJADE [Suspect]
     Indication: IRON OVERLOAD
     Dosage: 500 MG PLUS 3/4
     Route: 065
  2. BLOOD TRANSFUSION, AUXILIARY PRODUCTS [Concomitant]
     Dosage: EVERY 3 MONTH
     Route: 065

REACTIONS (2)
  - BLOOD IRON INCREASED [None]
  - GASTROINTESTINAL INFLAMMATION [None]
